FAERS Safety Report 6363632-X (Version None)
Quarter: 2009Q3

REPORT INFORMATION
  Report Type: 
  Country: None (occurrence: None)
  Receive Date: 20090919
  Receipt Date: 20090630
  Transmission Date: 20100115
  Serious: No
  Sender: FDA-Public Use
  Company Number: US-ABBOTT-09P-163-0583053-00

PATIENT
  Sex: Male
  Weight: 118.49 kg

DRUGS (15)
  1. HUMIRA [Suspect]
     Indication: ARTHRITIS REACTIVE
     Route: 058
     Dates: start: 20090529
  2. METHOTREXATE [Concomitant]
     Indication: DRUG USE FOR UNKNOWN INDICATION
     Route: 050
  3. PROCARDIA XL [Concomitant]
     Indication: BLOOD PRESSURE
  4. HYDROCHLOROTHIAZIDE [Concomitant]
     Indication: DRUG USE FOR UNKNOWN INDICATION
  5. AMBIEN [Concomitant]
     Indication: DRUG USE FOR UNKNOWN INDICATION
     Dosage: 1/2-1 TAB HS
  6. PERCOCET [Concomitant]
     Indication: PAIN
     Dosage: 7.5-325 6-8/ DAY PRN
  7. OMEPRAZOLE [Concomitant]
     Indication: DRUG USE FOR UNKNOWN INDICATION
  8. NIACIN [Concomitant]
     Indication: DRUG USE FOR UNKNOWN INDICATION
  9. FOLIC ACID [Concomitant]
     Indication: DRUG USE FOR UNKNOWN INDICATION
  10. FLEXERIL [Concomitant]
     Indication: DRUG USE FOR UNKNOWN INDICATION
  11. XYZAL [Concomitant]
     Indication: PRURITUS
  12. PREDNISONE [Concomitant]
     Indication: DRUG USE FOR UNKNOWN INDICATION
  13. LUMIGAN [Concomitant]
     Indication: DRUG USE FOR UNKNOWN INDICATION
     Route: 047
  14. APEXICON [Concomitant]
     Indication: DRUG USE FOR UNKNOWN INDICATION
  15. MAXAL [Concomitant]
     Indication: MIGRAINE

REACTIONS (1)
  - DRUG DOSE OMISSION [None]
